FAERS Safety Report 9982493 (Version 1)
Quarter: 2014Q1

REPORT INFORMATION
  Report Type: Spontaneous
  Country: US (occurrence: US)
  Receive Date: 20140307
  Receipt Date: 20140307
  Transmission Date: 20141002
  Serious: Yes (Death, Hospitalization, Other)
  Sender: FDA-Public Use
  Company Number: US-MALLINCKRODT-T201401396

PATIENT
  Age: 8 Year
  Sex: Female

DRUGS (6)
  1. GABLOFEN [Suspect]
     Indication: MUSCLE SPASTICITY
     Dosage: 444 MCG/DAY
     Route: 037
     Dates: start: 20131205
  2. GABLOFEN [Suspect]
     Dosage: 424.7 MCG/DAY
     Route: 037
     Dates: start: 20130930, end: 20131205
  3. GABLOFEN [Suspect]
     Dosage: 355.7 MCG/DAY
     Route: 037
     Dates: end: 20130930
  4. SINEMET [Concomitant]
     Dosage: 25/100 MG, 1/4 TABLET AT NIGHT
  5. VALIUM [Concomitant]
     Dosage: UNK
  6. NEURONTIN [Concomitant]
     Dosage: UNK

REACTIONS (9)
  - Death [Fatal]
  - Respiratory failure [Recovered/Resolved]
  - Abnormal loss of weight [Unknown]
  - Feeding disorder of infancy or early childhood [Unknown]
  - Vomiting [Unknown]
  - Post procedural complication [Unknown]
  - Muscle contracture [Unknown]
  - Constipation [Unknown]
  - Decubitus ulcer [Unknown]
